FAERS Safety Report 25767497 (Version 2)
Quarter: 2025Q3

REPORT INFORMATION
  Report Type: Spontaneous
  Country: US (occurrence: US)
  Receive Date: 20250905
  Receipt Date: 20250922
  Transmission Date: 20251020
  Serious: Yes (Hospitalization)
  Sender: NOVO NORDISK
  Company Number: US-NOVOPROD-1490124

PATIENT
  Sex: Female

DRUGS (2)
  1. OZEMPIC [Suspect]
     Active Substance: SEMAGLUTIDE
     Indication: Weight control
  2. OZEMPIC [Suspect]
     Active Substance: SEMAGLUTIDE
     Indication: Type 2 diabetes mellitus
     Dosage: 1 MG, QW
     Route: 058
     Dates: start: 202406, end: 20250810

REACTIONS (8)
  - Dehydration [Recovering/Resolving]
  - Malnutrition [Recovering/Resolving]
  - Decreased appetite [Not Recovered/Not Resolved]
  - Lymphadenopathy [Recovered/Resolved]
  - Amnesia [Unknown]
  - Brain fog [Unknown]
  - Mobility decreased [Recovered/Resolved]
  - Asthenia [Recovered/Resolved]
